FAERS Safety Report 7210741-9 (Version None)
Quarter: 2011Q1

REPORT INFORMATION
  Report Type: 
  Country: None (occurrence: None)
  Receive Date: 20110105
  Receipt Date: 20110105
  Transmission Date: 20110831
  Serious: Yes (Hospitalization)
  Sender: FDA-Public Use
  Company Number: PHHO2004FR04673

PATIENT
  Sex: Male
  Weight: 72 kg

DRUGS (1)
  1. VALSARTAN+SIMVASTATIN [Suspect]
     Indication: ESSENTIAL HYPERTENSION
     Dosage: 160MG/20MG
     Dates: start: 20030405

REACTIONS (3)
  - ABSCESS INTESTINAL [None]
  - COLECTOMY [None]
  - INTESTINAL OBSTRUCTION [None]
